FAERS Safety Report 7184254-7 (Version None)
Quarter: 2010Q4

REPORT INFORMATION
  Report Type: 
  Country: None (occurrence: None)
  Receive Date: 20101222
  Receipt Date: 20100520
  Transmission Date: 20110411
  Serious: No
  Sender: FDA-Public Use
  Company Number: US-AMGEN-KDL413585

PATIENT

DRUGS (9)
  1. ENBREL [Suspect]
     Indication: PRODUCT USED FOR UNKNOWN INDICATION
     Dosage: 25 MG, UNK
  2. ROPINIROLE HYDROCHLORIDE [Concomitant]
     Dosage: 2 MG, UNK
  3. ZOLPIDEM TARTRATE [Concomitant]
     Dosage: 10 MG, UNK
  4. DOXAZOSIN MESYLATE [Concomitant]
     Dosage: 4 MG, UNK
  5. FEXOFENADINE HCL [Concomitant]
     Dosage: UNK UNK, Q12H
  6. FOLIC ACID [Concomitant]
     Dosage: 1 MG, UNK
  7. ROSUVASTATIN CALCIUM [Concomitant]
     Dosage: 20 MG, UNK
  8. ADDERALL 10 [Concomitant]
     Dosage: 20 MG, UNK
  9. CALCIUM WITH VITAMIN D [Concomitant]
     Dosage: UNK UNK, UNK

REACTIONS (2)
  - INJECTION SITE HAEMATOMA [None]
  - INJECTION SITE PAIN [None]
